FAERS Safety Report 8847610 (Version 1)
Quarter: 2012Q4

REPORT INFORMATION
  Report Type: 
  Country: US (occurrence: US)
  Receive Date: 20121018
  Receipt Date: 20121018
  Transmission Date: 20130627
  Serious: No
  Sender: FDA-Public Use
  Company Number: US-ASTRAZENECA-2012SE76929

PATIENT
  Age: 25 Year
  Sex: Female
  Weight: 49.9 kg

DRUGS (4)
  1. SEROQUEL [Suspect]
     Route: 048
     Dates: end: 20121004
  2. SEROQUEL [Suspect]
     Route: 048
  3. SEROQUEL [Suspect]
     Dosage: HALF OF SERQUEL 200 MG
     Route: 048
  4. BIRTH CONTROL [Concomitant]

REACTIONS (3)
  - Insomnia [Unknown]
  - Drug dose omission [Unknown]
  - Intentional drug misuse [Unknown]
